FAERS Safety Report 22035796 (Version 1)
Quarter: 2023Q1

REPORT INFORMATION
  Report Type: Spontaneous
  Country: US (occurrence: US)
  Receive Date: 20230224
  Receipt Date: 20230224
  Transmission Date: 20230418
  Serious: Yes (Hospitalization, Other)
  Sender: FDA-Public Use
  Company Number: US-PFIZER INC-PV202200059546

PATIENT
  Age: 60 Year
  Sex: Female
  Weight: 63.5 kg

DRUGS (3)
  1. RAPAMUNE [Suspect]
     Active Substance: SIROLIMUS
     Indication: Heart transplant
     Dosage: UNK (TAKE 3MG ALTERNATING WITH 4MG DAILY - QTY OF 360/ALTERNATING 3MG ONE DAY AND 4MG THE NEXT DAY)
  2. RAPAMUNE [Suspect]
     Active Substance: SIROLIMUS
     Dosage: UNK (1MG AND THEN ALTERNATING 1MG WITH 2MG)
  3. RAPAMUNE [Suspect]
     Active Substance: SIROLIMUS
     Dosage: UNK (ALTERNATING 3MG ONE DAY AND 4MG THE NEXT DAY)
     Dates: end: 202212

REACTIONS (11)
  - Blood creatinine increased [Unknown]
  - Blood urea increased [Unknown]
  - Drug level increased [Unknown]
  - Renal disorder [Recovered/Resolved]
  - Pneumonia [Unknown]
  - Off label use [Unknown]
  - Drug level decreased [Unknown]
  - Off label use [Unknown]
  - Illness [Unknown]
  - Malaise [Unknown]
  - Dehydration [Unknown]

NARRATIVE: CASE EVENT DATE: 20221201
